FAERS Safety Report 5519308-1 (Version None)
Quarter: 2007Q4

REPORT INFORMATION
  Report Type: 
  Country: None (occurrence: None)
  Receive Date: 20071114
  Receipt Date: 20071030
  Transmission Date: 20080405
  Serious: Yes (Other)
  Sender: FDA-Public Use
  Company Number: 163493ISR

PATIENT
  Age: 75 Year
  Sex: Male

DRUGS (8)
  1. CISPLATIN [Suspect]
     Indication: OESOPHAGEAL CARCINOMA
     Dosage: (0.5 MG/ML)
     Dates: start: 20070901
  2. CAPECITABINE [Suspect]
     Indication: OESOPHAGEAL CARCINOMA
     Dosage: (150 MG)
     Dates: start: 20070901
  3. LISINOPRIL [Concomitant]
  4. DIGOXIN [Concomitant]
  5. GLYCERYL TRINITRATE [Concomitant]
  6. CLOPIDOGREL [Concomitant]
  7. AMIODARONE HCL [Concomitant]
  8. GEMFIBROZIL [Concomitant]

REACTIONS (4)
  - CARDIOTOXICITY [None]
  - CHEST PAIN [None]
  - DYSPNOEA [None]
  - MYOCARDIAL ISCHAEMIA [None]
